FAERS Safety Report 12700545 (Version 1)
Quarter: 2016Q3

REPORT INFORMATION
  Report Type: Spontaneous
  Country: US (occurrence: US)
  Receive Date: 20160830
  Receipt Date: 20160830
  Transmission Date: 20161109
  Serious: No
  Sender: FDA-Public Use
  Company Number: US-ACTELION-A-US2016-141557

PATIENT
  Age: 7 Year
  Sex: Male

DRUGS (15)
  1. COCONUT OIL [Concomitant]
     Active Substance: COCONUT OIL
  2. CHILDRENS TYLENOL [Concomitant]
     Active Substance: ACETAMINOPHEN
     Dosage: UNK
     Route: 048
     Dates: start: 20111011
  3. PREDNISONE. [Concomitant]
     Active Substance: PREDNISONE
     Dosage: UNK
     Route: 048
     Dates: start: 20140313
  4. ATIVAN [Concomitant]
     Active Substance: LORAZEPAM
     Dosage: UNK
     Dates: start: 20140313
  5. PROBIOTIC [Concomitant]
     Active Substance: PROBIOTICS NOS
  6. MOTRIN [Concomitant]
     Active Substance: IBUPROFEN
     Dosage: UNK
     Route: 048
     Dates: start: 20111011
  7. BACLOFEN. [Concomitant]
     Active Substance: BACLOFEN
     Dosage: UNK
     Dates: start: 20140313
  8. HYDROMORPHONE [Concomitant]
     Active Substance: HYDROMORPHONE
     Dosage: UNK
     Route: 048
     Dates: start: 20140313
  9. METHADONE [Concomitant]
     Active Substance: METHADONE HYDROCHLORIDE
     Dosage: UNK
     Route: 048
     Dates: start: 20140313
  10. HYDROXYCHLOROQUINE [Concomitant]
     Active Substance: HYDROXYCHLOROQUINE
     Dosage: UNK
     Route: 048
     Dates: start: 20140313
  11. ALBUTEROL. [Concomitant]
     Active Substance: ALBUTEROL
     Dosage: UNK
     Dates: start: 20140313
  12. ZAVESCA [Suspect]
     Active Substance: MIGLUSTAT
     Indication: LIPIDOSIS
     Dosage: 100 MG, UNK
     Route: 048
     Dates: start: 20120326
  13. MELATONIN [Concomitant]
     Active Substance: MELATONIN
     Dosage: UNK
     Route: 048
     Dates: start: 20140313
  14. PEPCID [Concomitant]
     Active Substance: FAMOTIDINE
     Dosage: UNK
     Route: 048
     Dates: start: 20111011
  15. MEPRON [Concomitant]
     Active Substance: ATOVAQUONE
     Dosage: UNK
     Dates: start: 20140313

REACTIONS (1)
  - Unevaluable event [Unknown]
